FAERS Safety Report 25653108 (Version 1)
Quarter: 2025Q3

REPORT INFORMATION
  Report Type: Spontaneous
  Country: US (occurrence: US)
  Receive Date: 20250807
  Receipt Date: 20250807
  Transmission Date: 20251021
  Serious: No
  Sender: DR REDDYS
  Company Number: US-DRL-USA-USA/2025/07/010164

PATIENT
  Sex: Male

DRUGS (1)
  1. OMEPRAZOLE\SODIUM BICARBONATE [Suspect]
     Active Substance: OMEPRAZOLE\SODIUM BICARBONATE
     Indication: Product used for unknown indication
     Dosage: FORMULATION: POWDER FOR SUSPENSION
     Route: 065

REACTIONS (1)
  - Product prescribing error [Unknown]
